FAERS Safety Report 20469278 (Version 1)
Quarter: 2022Q1

REPORT INFORMATION
  Report Type: Spontaneous
  Country: GB (occurrence: GB)
  Receive Date: 20220214
  Receipt Date: 20220214
  Transmission Date: 20220424
  Serious: Yes (Other)
  Sender: FDA-Public Use
  Company Number: None

PATIENT
  Age: 25 Year
  Weight: 100 kg

DRUGS (1)
  1. NIQUITIN [Suspect]
     Active Substance: NICOTINE
     Indication: Nicotine dependence
     Dosage: 1 MG
     Route: 048
     Dates: start: 20190704, end: 20190704

REACTIONS (1)
  - Chemical burn [Recovered/Resolved]

NARRATIVE: CASE EVENT DATE: 20190704
